FAERS Safety Report 24992059 (Version 1)
Quarter: 2025Q1

REPORT INFORMATION
  Report Type: Spontaneous
  Country: DE (occurrence: DE)
  Receive Date: 20250220
  Receipt Date: 20250220
  Transmission Date: 20250409
  Serious: Yes (Hospitalization)
  Sender: TEVA
  Company Number: None

PATIENT
  Age: 79 Year
  Sex: Male
  Weight: 80 kg

DRUGS (4)
  1. CIPROFLOXACIN [Suspect]
     Active Substance: CIPROFLOXACIN
     Indication: Urinary tract infection bacterial
     Dosage: 200 MG 1-0-1
     Route: 048
     Dates: start: 20240514, end: 20240715
  2. ELIQUIS [Concomitant]
     Active Substance: APIXABAN
     Indication: Product used for unknown indication
     Dosage: 1-0-1-0
     Route: 065
  3. METOPROLOL SUCCINATE [Concomitant]
     Active Substance: METOPROLOL SUCCINATE
     Indication: Product used for unknown indication
     Dosage: 1-0-0-0
     Route: 065
  4. ROSUVASTATIN HEUMANN [Concomitant]
     Indication: Product used for unknown indication
     Dosage: 0-0-1-0
     Route: 065

REACTIONS (4)
  - Groin pain [Recovered/Resolved]
  - Tendon pain [Recovered/Resolved]
  - Pain [Recovered/Resolved]
  - Walking aid user [Recovered/Resolved]

NARRATIVE: CASE EVENT DATE: 20240514
